FAERS Safety Report 10503193 (Version 1)
Quarter: 2014Q4

REPORT INFORMATION
  Report Type: Spontaneous
  Country: ES (occurrence: ES)
  Receive Date: 20141007
  Receipt Date: 20141007
  Transmission Date: 20150528
  Serious: Yes (Hospitalization)
  Sender: FDA-Public Use
  Company Number: ES-ROCHE-1469615

PATIENT
  Age: 45 Year
  Sex: Male

DRUGS (6)
  1. DEXAMETASONA [Concomitant]
     Active Substance: DEXAMETHASONE
     Route: 042
     Dates: start: 20131010, end: 20131010
  2. KYTRIL [Concomitant]
     Active Substance: GRANISETRON HYDROCHLORIDE
     Indication: VOMITING
     Route: 042
     Dates: start: 20131010, end: 20131010
  3. ABSTRAL [Concomitant]
     Active Substance: FENTANYL CITRATE
     Route: 042
     Dates: start: 20131010, end: 20131010
  4. XELODA [Suspect]
     Active Substance: CAPECITABINE
     Indication: GASTRIC CANCER
     Route: 048
     Dates: start: 20131010, end: 20131025
  5. BEMIPARIN SODIUM [Suspect]
     Active Substance: BEMIPARIN SODIUM
     Indication: DEEP VEIN THROMBOSIS
     Dosage: 7500 SC
     Route: 058
     Dates: start: 201308, end: 20131026
  6. OXALIPLATINO [Suspect]
     Active Substance: OXALIPLATIN
     Indication: GASTRIC CANCER
     Route: 042
     Dates: start: 20131010, end: 20131010

REACTIONS (2)
  - Hypocoagulable state [Recovered/Resolved]
  - Renal failure [Recovered/Resolved]

NARRATIVE: CASE EVENT DATE: 20131025
